FAERS Safety Report 5233401-2 (Version None)
Quarter: 2007Q1

REPORT INFORMATION
  Report Type: 
  Country: None (occurrence: None)
  Receive Date: 20070208
  Receipt Date: 20070126
  Transmission Date: 20070707
  Serious: Yes (Hospitalization)
  Sender: FDA-Public Use
  Company Number: PHEH2007US01303

PATIENT
  Age: 62 Year
  Sex: Male

DRUGS (2)
  1. TRILEPTAL [Suspect]
     Dates: start: 20040101
  2. KEPPRA [Suspect]
     Dates: start: 20030101

REACTIONS (4)
  - CHOLELITHIASIS [None]
  - CHOLELITHOTOMY [None]
  - JAUNDICE CHOLESTATIC [None]
  - LIVER DISORDER [None]
